FAERS Safety Report 6086869-6 (Version None)
Quarter: 2009Q1

REPORT INFORMATION
  Report Type: 
  Country: None (occurrence: None)
  Receive Date: 20090223
  Receipt Date: 20090211
  Transmission Date: 20090719
  Serious: Yes (Death)
  Sender: FDA-Public Use
  Company Number: US-PFIZER INC-2009170118

PATIENT
  Sex: Female

DRUGS (1)
  1. DILANTIN-125 [Suspect]

REACTIONS (1)
  - STEVENS-JOHNSON SYNDROME [None]
